FAERS Safety Report 6055016-9 (Version None)
Quarter: 2009Q1

REPORT INFORMATION
  Report Type: 
  Country: None (occurrence: None)
  Receive Date: 20090128
  Receipt Date: 20090119
  Transmission Date: 20090719
  Serious: Yes (Other)
  Sender: FDA-Public Use
  Company Number: US-BAXTER-2009BH001027

PATIENT
  Age: 35 Year
  Sex: Female

DRUGS (2)
  1. SUPRANE [Suspect]
     Indication: ANAESTHESIA
     Route: 055
     Dates: start: 20090116, end: 20090116
  2. SUPRANE [Suspect]
     Indication: APPENDICECTOMY
     Route: 055
     Dates: start: 20090116, end: 20090116

REACTIONS (1)
  - INCREASED UPPER AIRWAY SECRETION [None]
